FAERS Safety Report 5281491-3 (Version None)
Quarter: 2007Q1

REPORT INFORMATION
  Report Type: 
  Country: None (occurrence: None)
  Receive Date: 20070323
  Receipt Date: 20070323
  Transmission Date: 20070707
  Serious: Yes (Other)
  Sender: FDA-Public Use
  Company Number: None

PATIENT
  Sex: Female
  Weight: 58.9676 kg

DRUGS (1)
  1. FELBATOL [Suspect]
     Indication: EPILEPSY
     Dosage: 400 MG 3 TIMES DAILY PO
     Route: 048
     Dates: start: 20040701, end: 20070322

REACTIONS (1)
  - MUSCLE SPASMS [None]
